FAERS Safety Report 6508566-2 (Version None)
Quarter: 2009Q4

REPORT INFORMATION
  Report Type: 
  Country: None (occurrence: None)
  Receive Date: 20091221
  Receipt Date: 20091208
  Transmission Date: 20100525
  Serious: No
  Sender: FDA-Public Use
  Company Number: BR-ELI_LILLY_AND_COMPANY-BR200912002049

PATIENT
  Sex: Male
  Weight: 64 kg

DRUGS (2)
  1. CIALIS [Suspect]
     Indication: ERECTILE DYSFUNCTION
     Dosage: 20 MG, 3/W
     Route: 048
     Dates: start: 20030101
  2. LEXOTAN [Concomitant]
     Indication: STRESS
     Dosage: 3 MG, AS NEEDED
     Route: 048

REACTIONS (2)
  - TINNITUS [None]
  - VISUAL IMPAIRMENT [None]
